FAERS Safety Report 5621827-4 (Version None)
Quarter: 2008Q1

REPORT INFORMATION
  Report Type: 
  Country: None (occurrence: None)
  Receive Date: 20080211
  Receipt Date: 20080130
  Transmission Date: 20080703
  Serious: Yes (Life-Threatening, Other)
  Sender: FDA-Public Use
  Company Number: ES-WYE-H02540008

PATIENT
  Age: 63 Year
  Sex: Female

DRUGS (6)
  1. TRANGOREX [Suspect]
     Indication: ATRIAL FIBRILLATION
     Route: 048
     Dates: start: 20070313, end: 20070719
  2. ACFOL [Concomitant]
     Dosage: DOSE UNKNOWN
     Route: 065
  3. RENAGEL [Interacting]
     Indication: RENAL FAILURE CHRONIC
     Route: 048
  4. LORAMET [Interacting]
     Dosage: 1 MG, FREQUENCY UNKNOWN
     Route: 048
  5. SINTROM [Interacting]
     Indication: ATRIAL FIBRILLATION
     Dosage: DOSE UNKNOWN
     Route: 048
     Dates: start: 20070315, end: 20070720
  6. OMEPRAZOLE [Interacting]
     Indication: PROPHYLAXIS AGAINST GASTROINTESTINAL ULCER
     Route: 048

REACTIONS (3)
  - DRUG INTERACTION [None]
  - INTERNATIONAL NORMALISED RATIO INCREASED [None]
  - PERICARDIAL HAEMORRHAGE [None]
